FAERS Safety Report 15051351 (Version 2)
Quarter: 2018Q2

REPORT INFORMATION
  Report Type: Spontaneous
  Country: US (occurrence: US)
  Receive Date: 20180622
  Receipt Date: 20180626
  Transmission Date: 20180711
  Serious: Yes (Hospitalization)
  Sender: FDA-Public Use
  Company Number: US-FRESENIUS MEDICAL CARE RENAL THERAPIES GROUP-FMC-1806-001134

PATIENT
  Age: 59 Year
  Sex: Female

DRUGS (18)
  1. CLOBETASOL [Concomitant]
     Active Substance: CLOBETASOL
  2. GABAPENTIN. [Concomitant]
     Active Substance: GABAPENTIN
  3. LABETALOL [Concomitant]
     Active Substance: LABETALOL\LABETALOL HYDROCHLORIDE
  4. TACROLIMUS. [Concomitant]
     Active Substance: TACROLIMUS
  5. FLUOXETINE [Concomitant]
     Active Substance: FLUOXETINE HYDROCHLORIDE
  6. LISINOPRIL. [Concomitant]
     Active Substance: LISINOPRIL
  7. RENVELA [Concomitant]
     Active Substance: SEVELAMER CARBONATE
  8. NYSTATIN. [Concomitant]
     Active Substance: NYSTATIN
  9. ATORVASTATIN [Concomitant]
     Active Substance: ATORVASTATIN
  10. LANTUS [Concomitant]
     Active Substance: INSULIN GLARGINE
  11. POTASSIUM CHLORIDE. [Concomitant]
     Active Substance: POTASSIUM CHLORIDE
  12. SODIUM BICARBONATE. [Concomitant]
     Active Substance: SODIUM BICARBONATE
  13. DELFLEX WITH DEXTROSE 2.5% LOW MAGNESIUM LOW CALCIUM [Suspect]
     Active Substance: CALCIUM CHLORIDE\DEXTROSE\MAGNESIUM CHLORIDE\SODIUM CHLORIDE\SODIUM LACTATE
     Indication: END STAGE RENAL DISEASE
     Route: 033
     Dates: start: 201508
  14. CLONAZEPAM. [Concomitant]
     Active Substance: CLONAZEPAM
  15. CEFUROXIME. [Concomitant]
     Active Substance: CEFUROXIME
  16. NOVOLOG [Concomitant]
     Active Substance: INSULIN ASPART
  17. AZITHROMYCIN ANHYDROUS. [Concomitant]
     Active Substance: AZITHROMYCIN ANHYDROUS
  18. TRAMADOL. [Concomitant]
     Active Substance: TRAMADOL

REACTIONS (3)
  - Sepsis [Recovering/Resolving]
  - Pneumonia [Recovering/Resolving]
  - Renal impairment [Recovering/Resolving]

NARRATIVE: CASE EVENT DATE: 20180612
